FAERS Safety Report 17001676 (Version 1)
Quarter: 2019Q4

REPORT INFORMATION
  Report Type: Spontaneous
  Country: BE (occurrence: BE)
  Receive Date: 20191106
  Receipt Date: 20191106
  Transmission Date: 20200122
  Serious: Yes (Other)
  Sender: FDA-Public Use
  Company Number: BE-PFIZER INC-2019471100

PATIENT
  Age: 38 Year
  Sex: Male

DRUGS (6)
  1. LEDERTREXATE [Suspect]
     Active Substance: METHOTREXATE
     Indication: BURKITT^S LYMPHOMA
     Dosage: 15 MG, UNK
     Route: 037
     Dates: start: 20191021, end: 20191021
  2. PREDNISONE. [Suspect]
     Active Substance: PREDNISONE
     Indication: BURKITT^S LYMPHOMA
     Dosage: CHOP
     Dates: end: 20191023
  3. LEDERTREXATE [Suspect]
     Active Substance: METHOTREXATE
     Dosage: 3 G, UNK
     Route: 042
     Dates: start: 20191022, end: 20191022
  4. VINCRISTINE SULPHATE [Suspect]
     Active Substance: VINCRISTINE SULFATE
     Indication: BURKITT^S LYMPHOMA
     Dosage: UNK
     Dates: end: 20191023
  5. DOXORUBICIN HCL [Suspect]
     Active Substance: DOXORUBICIN HYDROCHLORIDE
     Indication: BURKITT^S LYMPHOMA
     Dosage: CHOP
     Dates: end: 20191023
  6. CYCLOPHOSPHAMIDE. [Suspect]
     Active Substance: CYCLOPHOSPHAMIDE
     Indication: BURKITT^S LYMPHOMA
     Dosage: CHOP
     Dates: end: 20191023

REACTIONS (1)
  - Renal failure [Recovering/Resolving]
